FAERS Safety Report 25927029 (Version 1)
Quarter: 2025Q4

REPORT INFORMATION
  Report Type: Spontaneous
  Country: GB (occurrence: GB)
  Receive Date: 20251015
  Receipt Date: 20251015
  Transmission Date: 20260118
  Serious: Yes (Other)
  Sender: NOVO NORDISK
  Company Number: None

PATIENT
  Age: 59 Year
  Sex: Female
  Weight: 78 kg

DRUGS (4)
  1. WEGOVY [Suspect]
     Active Substance: SEMAGLUTIDE
     Indication: Weight control
     Dosage: 1.7 MG
     Dates: start: 20250930
  2. SERTRALINE [Concomitant]
     Active Substance: SERTRALINE HYDROCHLORIDE
     Indication: Depression
     Dosage: UNK
  3. SERTRALINE [Concomitant]
     Active Substance: SERTRALINE HYDROCHLORIDE
     Indication: Anxiety
  4. AMITRIPTYLINE [Concomitant]
     Active Substance: AMITRIPTYLINE
     Indication: Restless legs syndrome
     Dosage: UNK

REACTIONS (5)
  - Myalgia [Not Recovered/Not Resolved]
  - Vertigo [Not Recovered/Not Resolved]
  - Presyncope [Not Recovered/Not Resolved]
  - Nausea [Not Recovered/Not Resolved]
  - Fatigue [Not Recovered/Not Resolved]

NARRATIVE: CASE EVENT DATE: 20250930
